FAERS Safety Report 12411456 (Version 1)
Quarter: 2016Q2

REPORT INFORMATION
  Report Type: Spontaneous
  Country: US (occurrence: None)
  Receive Date: 20160526
  Receipt Date: 20160526
  Transmission Date: 20160815
  Serious: Yes (Other)
  Sender: FDA-Public Use
  Company Number: None

PATIENT
  Age: 68 Year
  Sex: Female
  Weight: 76.2 kg

DRUGS (15)
  1. TRAMADOL. [Concomitant]
     Active Substance: TRAMADOL
  2. LOVASTATIN 20 MG [Suspect]
     Active Substance: LOVASTATIN
     Indication: BLOOD CHOLESTEROL INCREASED
     Route: 048
     Dates: start: 20141101, end: 20150428
  3. IMITREX [Concomitant]
     Active Substance: SUMATRIPTAN SUCCINATE
  4. AMLIEN [Concomitant]
  5. MULTIVIT. B [Concomitant]
  6. OSTEO BIFLEX [Concomitant]
     Active Substance: CHONDROITIN SULFATE A\GLUCOSAMINE
  7. VITAMIN E [Concomitant]
     Active Substance: .ALPHA.-TOCOPHEROL
  8. FISH OIL [Concomitant]
     Active Substance: FISH OIL
  9. VITAMIN C [Concomitant]
     Active Substance: ASCORBIC ACID
  10. CALCIUM W/D [Concomitant]
  11. NEOMYCIN [Concomitant]
     Active Substance: NEOMYCIN
  12. DESILANT [Concomitant]
  13. LUTEIN [Concomitant]
     Active Substance: LUTEIN
  14. MULTIVITAMIN [Concomitant]
     Active Substance: VITAMINS
  15. LISINOPRIL. [Concomitant]
     Active Substance: LISINOPRIL

REACTIONS (6)
  - Hot flush [None]
  - Somnolence [None]
  - Myalgia [None]
  - Fatigue [None]
  - Pain in extremity [None]
  - Appetite disorder [None]

NARRATIVE: CASE EVENT DATE: 20150220
